FAERS Safety Report 15210623 (Version 4)
Quarter: 2019Q4

REPORT INFORMATION
  Report Type: Report from Study
  Country: None (occurrence: US)
  Receive Date: 20180728
  Receipt Date: 20191104
  Transmission Date: 20200122
  Serious: Yes (Hospitalization, Other)
  Sender: FDA-Public Use
  Company Number: US-ABBVIE-18K-163-2372386-00

PATIENT
  Age: 66 Year
  Sex: Female
  Weight: 90.8 kg

DRUGS (17)
  1. IRON [Concomitant]
     Active Substance: IRON
     Indication: ANAEMIA
  2. POLURENE [Concomitant]
     Indication: ANAEMIA
  3. BACLOFEN. [Concomitant]
     Active Substance: BACLOFEN
     Indication: SLEEP DISORDER THERAPY
  4. CBD OIL [Concomitant]
     Active Substance: CANNABIDIOL\HERBALS
     Indication: SUPPLEMENTATION THERAPY
  5. VITAMIN D3 [Concomitant]
     Active Substance: CHOLECALCIFEROL
     Indication: VITAMIN SUPPLEMENTATION
  6. HUMIRA [Suspect]
     Active Substance: ADALIMUMAB
     Indication: CROHN^S DISEASE
     Route: 058
     Dates: start: 201702
  7. LISINOPRIL HCTZ [Concomitant]
     Active Substance: HYDROCHLOROTHIAZIDE\LISINOPRIL
     Indication: HYPERTENSION
  8. ROPINIROLE. [Concomitant]
     Active Substance: ROPINIROLE
     Indication: RESTLESS LEGS SYNDROME
  9. MESALAMINE. [Concomitant]
     Active Substance: MESALAMINE
     Indication: CROHN^S DISEASE
  10. ZOLOFT [Concomitant]
     Active Substance: SERTRALINE HYDROCHLORIDE
     Indication: DEPRESSION
  11. TRAZODONE [Concomitant]
     Active Substance: TRAZODONE HYDROCHLORIDE
     Indication: DEPRESSION
  12. HUMIRA [Suspect]
     Active Substance: ADALIMUMAB
     Indication: CROHN^S DISEASE
     Route: 058
     Dates: start: 20180418, end: 201805
  13. HUMIRA [Suspect]
     Active Substance: ADALIMUMAB
     Route: 058
     Dates: start: 201805
  14. TRAZODONE [Concomitant]
     Active Substance: TRAZODONE HYDROCHLORIDE
     Indication: SLEEP DISORDER THERAPY
  15. AZATHIOPRINE. [Concomitant]
     Active Substance: AZATHIOPRINE
     Indication: ARTHRITIS
  16. LEVOTHYROXINE. [Suspect]
     Active Substance: LEVOTHYROXINE
     Indication: THYROID DISORDER
     Route: 048
  17. ALENDRONATE [Concomitant]
     Active Substance: ALENDRONATE SODIUM
     Indication: OSTEOPOROSIS

REACTIONS (5)
  - Gallbladder operation [Unknown]
  - Hypoaesthesia [Recovering/Resolving]
  - Procedural complication [Unknown]
  - Injection site pain [Recovered/Resolved]
  - Abdominal hernia [Not Recovered/Not Resolved]

NARRATIVE: CASE EVENT DATE: 20180523
